FAERS Safety Report 4785637-2 (Version None)
Quarter: 2005Q3

REPORT INFORMATION
  Report Type: 
  Country: None (occurrence: None)
  Receive Date: 20050929
  Receipt Date: 20050916
  Transmission Date: 20060218
  Serious: Yes (Hospitalization)
  Sender: FDA-Public Use
  Company Number: 2005117531

PATIENT
  Age: 51 Year
  Sex: Female
  Weight: 74.8435 kg

DRUGS (3)
  1. ZIPRASIDONE (CAPS) (ZIPRASIDONE) [Suspect]
     Indication: SCHIZOPHRENIA
     Dosage: 40 MG (20 MG, 2 IN 1 D), ORAL
     Route: 048
     Dates: start: 20050512, end: 20050705
  2. LITHIUM CARBONATE [Concomitant]
  3. FLUOXETINE [Concomitant]

REACTIONS (4)
  - DELUSION [None]
  - DISEASE PROGRESSION [None]
  - FRACTURED COCCYX [None]
  - SCHIZOPHRENIA [None]
